FAERS Safety Report 21744501 (Version 1)
Quarter: 2022Q4

REPORT INFORMATION
  Report Type: Report from Study
  Country: RO (occurrence: RO)
  Receive Date: 20221218
  Receipt Date: 20221218
  Transmission Date: 20230113
  Serious: Yes (Hospitalization)
  Sender: FDA-Public Use
  Company Number: RO-ABBVIE-4239184

PATIENT
  Age: 55 Year
  Sex: Female

DRUGS (4)
  1. HUMIRA [Suspect]
     Active Substance: ADALIMUMAB
     Indication: Psoriasis
     Route: 058
     Dates: start: 20090915, end: 20221128
  2. CALCIUM\MAGNESIUM [Concomitant]
     Active Substance: CALCIUM\MAGNESIUM
     Indication: Postoperative care
     Dosage: UNKNOWN
     Route: 048
     Dates: start: 202212
  3. CHOLECALCIFEROL [Concomitant]
     Active Substance: CHOLECALCIFEROL
     Indication: Postoperative care
     Dosage: UNKNOWN
     Route: 048
     Dates: start: 202212
  4. EUTHYROX [Concomitant]
     Active Substance: LEVOTHYROXINE SODIUM
     Indication: Postoperative care
     Dosage: 50 MICROGRAM
     Route: 048
     Dates: start: 202212

REACTIONS (2)
  - Thyroidectomy [Unknown]
  - Thyroid mass [Recovering/Resolving]

NARRATIVE: CASE EVENT DATE: 20140101
